FAERS Safety Report 23074772 (Version 1)
Quarter: 2023Q4

REPORT INFORMATION
  Report Type: Spontaneous
  Country: US (occurrence: US)
  Receive Date: 20231017
  Receipt Date: 20231017
  Transmission Date: 20240109
  Serious: Yes (Other)
  Sender: FDA-Public Use
  Company Number: US-BRISTOL-MYERS SQUIBB COMPANY-2023-147642

PATIENT
  Age: 75 Year
  Sex: Female

DRUGS (2)
  1. REVLIMID [Suspect]
     Active Substance: LENALIDOMIDE
     Indication: Plasma cell myeloma
     Dosage: DOSE : SEE ATTACHMENT;     FREQ : SEE ATTACHMENT
     Dates: start: 20201010
  2. DARATUMUMAB [Suspect]
     Active Substance: DARATUMUMAB
     Indication: Plasma cell myeloma
     Dosage: DOSE : SEE ATTACHMENT;     FREQ : SEE ATTACHMENT
     Dates: start: 20201010

REACTIONS (3)
  - Spinal cord compression [Unknown]
  - Pruritus [Unknown]
  - Vertebral lesion [Unknown]

NARRATIVE: CASE EVENT DATE: 20200101
